FAERS Safety Report 25036483 (Version 1)
Quarter: 2025Q1

REPORT INFORMATION
  Report Type: Spontaneous
  Country: US (occurrence: US)
  Receive Date: 20250304
  Receipt Date: 20250304
  Transmission Date: 20250409
  Serious: No
  Sender: Vantive US Healthcare
  Company Number: US-VANTIVE-2025VAN001021

PATIENT

DRUGS (1)
  1. EXTRANEAL [Suspect]
     Active Substance: CALCIUM CHLORIDE\ICODEXTRIN\MAGNESIUM CHLORIDE\SODIUM CHLORIDE\SODIUM LACTATE
     Route: 033

REACTIONS (6)
  - Increased intraperitoneal volume [Recovered/Resolved]
  - Wrong technique in product usage process [Unknown]
  - Product preparation error [Unknown]
  - Device leakage [Unknown]
  - Therapy interrupted [Unknown]
  - Abdominal distension [Recovered/Resolved]

NARRATIVE: CASE EVENT DATE: 20250222
